FAERS Safety Report 6182168-2 (Version None)
Quarter: 2009Q2

REPORT INFORMATION
  Report Type: 
  Country: None (occurrence: None)
  Receive Date: 20090505
  Receipt Date: 20090505
  Transmission Date: 20091009
  Serious: Yes (Hospitalization)
  Sender: FDA-Public Use
  Company Number: None

PATIENT
  Age: 86 Year
  Sex: Female

DRUGS (10)
  1. WARFARIN SODIUM [Suspect]
     Indication: THROMBOSIS PROPHYLAXIS
     Dosage: 5MG ALTERNATING WITH 2.5MG DAILY PO
     Route: 048
     Dates: end: 20090412
  2. CLOPIDOGREL [Suspect]
     Indication: THROMBOSIS PROPHYLAXIS
     Dosage: 75MG DAILY
     Dates: end: 20090412
  3. NAMENDA [Concomitant]
  4. EFFEXOR [Concomitant]
  5. LIPITOR [Concomitant]
  6. CITRACAL D [Concomitant]
  7. ADVAIR HFA [Concomitant]
  8. SPIRIVA [Concomitant]
  9. ALENDRONATE [Concomitant]
  10. XALATAN [Concomitant]

REACTIONS (5)
  - ANAEMIA [None]
  - HAEMORRHAGE [None]
  - MENTAL STATUS CHANGES [None]
  - RECTAL HAEMORRHAGE [None]
  - REFUSAL OF TREATMENT BY PATIENT [None]
